FAERS Safety Report 25701765 (Version 4)
Quarter: 2025Q4

REPORT INFORMATION
  Report Type: Spontaneous
  Country: DO (occurrence: DO)
  Receive Date: 20250819
  Receipt Date: 20251029
  Transmission Date: 20260117
  Serious: No
  Sender: PFIZER
  Company Number: DO-PFIZER INC-PV202500099184

PATIENT
  Age: 13 Year
  Sex: Male

DRUGS (1)
  1. GENOTROPIN [Suspect]
     Active Substance: SOMATROPIN
     Dosage: 2 MG, 1X/DAY

REACTIONS (2)
  - Device defective [Unknown]
  - Drug dose omission by device [Unknown]

NARRATIVE: CASE EVENT DATE: 20250812
